FAERS Safety Report 18962882 (Version 1)
Quarter: 2021Q1

REPORT INFORMATION
  Report Type: Spontaneous
  Country: US (occurrence: US)
  Receive Date: 20210302
  Receipt Date: 20210302
  Transmission Date: 20210420
  Serious: Yes (Other)
  Sender: FDA-Public Use
  Company Number: None

PATIENT
  Age: 67 Year
  Sex: Male
  Weight: 56.7 kg

DRUGS (2)
  1. FLUOROURACIL. [Suspect]
     Active Substance: FLUOROURACIL
  2. AVANOS HOMEPUMP 0?SERIES 270ML 5ML/HR 0270050 [Suspect]
     Active Substance: DEVICE
     Dates: start: 20210218, end: 20210220

REACTIONS (1)
  - Device defective [None]

NARRATIVE: CASE EVENT DATE: 20210218
